FAERS Safety Report 18527699 (Version 2)
Quarter: 2020Q4

REPORT INFORMATION
  Report Type: Spontaneous
  Country: US (occurrence: US)
  Receive Date: 20201120
  Receipt Date: 20201126
  Transmission Date: 20210114
  Serious: No
  Sender: FDA-Public Use
  Company Number: US-TEVA-2020-US-1850249

PATIENT
  Age: 70 Year
  Sex: Female

DRUGS (4)
  1. LOSARTAN. [Concomitant]
     Active Substance: LOSARTAN
  2. PRIMIDONE TEVA [Suspect]
     Active Substance: PRIMIDONE
     Indication: SEIZURE
     Dosage: 500 MILLIGRAM DAILY; DOSE: HAS BEEN ON THE MEDICATION FOR OVER 30 YEARS
     Route: 065
  3. DILANTIN [Concomitant]
     Active Substance: PHENYTOIN
  4. FOSFOMYCIN TROMETHAMINE [Suspect]
     Active Substance: FOSFOMYCIN TROMETHAMINE
     Route: 065

REACTIONS (14)
  - Pruritus [Not Recovered/Not Resolved]
  - Illness [Unknown]
  - Diarrhoea [Not Recovered/Not Resolved]
  - Vomiting [Recovered/Resolved]
  - Hepatic pain [Not Recovered/Not Resolved]
  - Renal pain [Not Recovered/Not Resolved]
  - Gait disturbance [Unknown]
  - Confusional state [Unknown]
  - Diplopia [Unknown]
  - Vertigo [Unknown]
  - Urinary tract infection [Not Recovered/Not Resolved]
  - Scratch [Not Recovered/Not Resolved]
  - Feeling abnormal [Not Recovered/Not Resolved]
  - Drug ineffective [Unknown]
